FAERS Safety Report 6519840-8 (Version None)
Quarter: 2009Q4

REPORT INFORMATION
  Report Type: 
  Country: None (occurrence: None)
  Receive Date: 20091228
  Receipt Date: 20091228
  Transmission Date: 20100525
  Serious: Yes (Life-Threatening)
  Sender: FDA-Public Use
  Company Number: None

PATIENT
  Age: 64 Year
  Sex: Male
  Weight: 63.5036 kg

DRUGS (1)
  1. ZICAM MATRIXX INITIATIVES INC. [Suspect]
     Indication: NASOPHARYNGITIS
     Dosage: SPRAY 1 NASAL ONCE
     Route: 045
     Dates: start: 20071215, end: 20071215

REACTIONS (12)
  - AGEUSIA [None]
  - ANOSMIA [None]
  - EPISTAXIS [None]
  - FOOD POISONING [None]
  - IMPAIRED WORK ABILITY [None]
  - MARITAL PROBLEM [None]
  - NASAL DISCOMFORT [None]
  - POOR PERSONAL HYGIENE [None]
  - RHINALGIA [None]
  - TREATMENT FAILURE [None]
  - UNEVALUABLE EVENT [None]
  - WEIGHT DECREASED [None]
